FAERS Safety Report 12980098 (Version 2)
Quarter: 2016Q4

REPORT INFORMATION
  Report Type: Spontaneous
  Country: NO (occurrence: NO)
  Receive Date: 20161128
  Receipt Date: 20161212
  Transmission Date: 20170207
  Serious: Yes (Other)
  Sender: FDA-Public Use
  Company Number: NO-UCBSA-2016043514

PATIENT
  Age: 7 Year
  Weight: 29 kg

DRUGS (7)
  1. BRIVIACT [Suspect]
     Active Substance: BRIVARACETAM
     Indication: SEIZURE
     Dosage: 2 MG, 2X/DAY (BID)
     Dates: start: 20161107, end: 20161115
  2. BRIVIACT [Suspect]
     Active Substance: BRIVARACETAM
     Indication: EPILEPSY
  3. KEPPRA [Suspect]
     Active Substance: LEVETIRACETAM
     Dosage: DAILY DOSE 60 MG
     Dates: start: 20161001
  4. FENEMAL [Concomitant]
     Active Substance: PHENOBARBITAL
     Indication: EPILEPSY
     Dosage: 19 MG, 2X/DAY (BID)
     Dates: start: 20090201
  5. ORFIRIL [Concomitant]
     Active Substance: VALPROIC ACID
     Indication: EPILEPSY
     Dosage: 200 MG, 2X/2 WEEKS
     Dates: start: 20111012
  6. LOSEC [Concomitant]
     Active Substance: OMEPRAZOLE
     Indication: GASTROOESOPHAGEAL REFLUX DISEASE
     Dosage: 300 MG, ONCE DAILY (QD)
     Dates: start: 20100128
  7. KEPPRA [Suspect]
     Active Substance: LEVETIRACETAM
     Indication: EPILEPSY
     Dosage: 120 MG, 2X/DAY (BID)
     Dates: start: 20160912, end: 2016

REACTIONS (5)
  - Epilepsy [Recovered/Resolved]
  - Gingivitis [Unknown]
  - Gingival hypertrophy [Unknown]
  - Abnormal behaviour [Unknown]
  - Off label use [Unknown]

NARRATIVE: CASE EVENT DATE: 20160912
